FAERS Safety Report 12059050 (Version 2)
Quarter: 2016Q1

REPORT INFORMATION
  Report Type: Report from Study
  Country: FR (occurrence: FR)
  Receive Date: 20160210
  Receipt Date: 20160321
  Transmission Date: 20160526
  Serious: Yes (Hospitalization)
  Sender: FDA-Public Use
  Company Number: FR-ROCHE-1708197

PATIENT
  Age: 61 Year
  Sex: Male

DRUGS (1)
  1. RITUXIMAB [Suspect]
     Active Substance: RITUXIMAB
     Indication: MANTLE CELL LYMPHOMA
     Route: 041
     Dates: start: 20100512, end: 20130826

REACTIONS (3)
  - Pleural effusion [Recovered/Resolved]
  - Pneumonia haemophilus [Recovered/Resolved]
  - Hypogammaglobulinaemia [Unknown]

NARRATIVE: CASE EVENT DATE: 20151116
